FAERS Safety Report 7218241-7 (Version None)
Quarter: 2011Q1

REPORT INFORMATION
  Report Type: 
  Country: None (occurrence: None)
  Receive Date: 20110110
  Receipt Date: 20101229
  Transmission Date: 20110831
  Serious: Yes (Other)
  Sender: FDA-Public Use
  Company Number: SE-PFIZER INC-2011004528

PATIENT
  Sex: Male

DRUGS (2)
  1. CORDARONE [Suspect]
  2. DRONEDARONE [Suspect]
     Dosage: UNK
     Dates: start: 20100101

REACTIONS (2)
  - HYPERTHYROIDISM [None]
  - URINARY TRACT DISORDER [None]
